FAERS Safety Report 4597025-2 (Version None)
Quarter: 2005Q1

REPORT INFORMATION
  Report Type: 
  Country: None (occurrence: None)
  Receive Date: 20050228
  Receipt Date: 20050217
  Transmission Date: 20050727
  Serious: Yes (Other)
  Sender: FDA-Public Use
  Company Number: GXKR2005US00615

PATIENT
  Age: 25 Year
  Sex: Male

DRUGS (2)
  1. PYRAZINAMIDE [Suspect]
     Indication: PROPHYLAXIS
     Dates: start: 20021001
  2. RIFAMPICIN [Suspect]
     Indication: PROPHYLAXIS
     Dates: start: 20021001

REACTIONS (7)
  - ABDOMINAL PAIN UPPER [None]
  - AUTOIMMUNE HEPATITIS [None]
  - BLOOD THYROID STIMULATING HORMONE DECREASED [None]
  - FLANK PAIN [None]
  - INTERNATIONAL NORMALISED RATIO INCREASED [None]
  - THYROIDITIS [None]
  - THYROXINE DECREASED [None]
